FAERS Safety Report 8628895 (Version 2)
Quarter: 2013Q2

REPORT INFORMATION
  Report Type: Spontaneous
  Country: CA (occurrence: CA)
  Receive Date: 20120621
  Receipt Date: 20130517
  Transmission Date: 20140414
  Serious: Yes (Other)
  Sender: FDA-Public Use
  Company Number: CA-JNJFOC-20120606001

PATIENT
  Age: 43 Year
  Sex: Female
  Weight: 106 kg

DRUGS (8)
  1. REMICADE [Suspect]
     Indication: RHEUMATOID ARTHRITIS
     Route: 042
     Dates: start: 20120307
  2. METHOTREXATE [Concomitant]
     Route: 065
  3. FOLIC ACID [Concomitant]
     Route: 065
  4. ELAVIL [Concomitant]
     Route: 065
  5. CABERGOLINE [Concomitant]
     Indication: BLOOD PROLACTIN DECREASED
     Dosage: HALF TABLET
     Route: 065
     Dates: start: 20110817
  6. CIPRALEX [Concomitant]
     Route: 065
  7. TECTA [Concomitant]
     Route: 065
  8. MORPHINE [Concomitant]
     Route: 065

REACTIONS (2)
  - Fungal infection [Recovered/Resolved]
  - Smear cervix abnormal [Unknown]
